FAERS Safety Report 9012965 (Version 1)
Quarter: 2013Q1

REPORT INFORMATION
  Report Type: Report from Study
  Country: US (occurrence: US)
  Receive Date: 20130114
  Receipt Date: 20130114
  Transmission Date: 20140127
  Serious: Yes (Other)
  Sender: FDA-Public Use
  Company Number: US-GLAXOSMITHKLINE-B0858376A

PATIENT
  Age: 46 Year
  Sex: Male
  Weight: 91.4 kg

DRUGS (6)
  1. ADVAIR [Suspect]
     Indication: ASTHMA
     Route: 045
     Dates: start: 201201
  2. BLINDED TRIAL MEDICATION [Suspect]
     Indication: ASTHMA
     Route: 058
     Dates: start: 20120816
  3. ALBUTEROL [Concomitant]
     Indication: ASTHMA
     Dosage: 90MG PER DAY
     Route: 045
     Dates: start: 2008
  4. FLONASE [Concomitant]
     Indication: RHINITIS SEASONAL
     Dosage: 2SPR PER DAY
     Route: 045
     Dates: start: 2011
  5. LOSARTAN [Concomitant]
     Indication: HYPERTENSION
     Dosage: 25MG PER DAY
     Route: 048
     Dates: start: 201205
  6. SINGULAIR [Concomitant]
     Indication: RHINITIS SEASONAL
     Dosage: 10MG PER DAY
     Route: 048
     Dates: start: 2008

REACTIONS (1)
  - Candida infection [Recovered/Resolved]
